FAERS Safety Report 6546339-5 (Version None)
Quarter: 2010Q1

REPORT INFORMATION
  Report Type: 
  Country: None (occurrence: None)
  Receive Date: 20100122
  Receipt Date: 20100118
  Transmission Date: 20100710
  Serious: Yes (Death)
  Sender: FDA-Public Use
  Company Number: US-ASTRAZENECA-2009SE33150

PATIENT
  Sex: Male

DRUGS (4)
  1. SYMBICORT [Suspect]
     Dosage: 160/4.5 MICROGRAM
     Route: 055
  2. NEXIUM [Suspect]
     Route: 048
  3. SEROQUEL [Suspect]
     Route: 048
  4. ACTOPLUS MET [Concomitant]

REACTIONS (1)
  - CARDIAC DISORDER [None]
